FAERS Safety Report 11486760 (Version 2)
Quarter: 2015Q3

REPORT INFORMATION
  Report Type: Spontaneous
  Country: US (occurrence: US)
  Receive Date: 20150910
  Receipt Date: 20150914
  Transmission Date: 20151125
  Serious: No
  Sender: FDA-Public Use
  Company Number: US-PFIZER INC-2015291840

PATIENT
  Age: 47 Year
  Sex: Female
  Weight: 98 kg

DRUGS (1)
  1. PHENYTOIN SODIUM. [Suspect]
     Active Substance: PHENYTOIN SODIUM
     Indication: SEIZURE
     Dosage: 500 MG, 1X/DAY (AT BEDTIME)

REACTIONS (1)
  - Drug ineffective [Not Recovered/Not Resolved]
